FAERS Safety Report 8250829-7 (Version None)
Quarter: 2012Q2

REPORT INFORMATION
  Report Type: 
  Country: None (occurrence: None)
  Receive Date: 20120402
  Receipt Date: 20120328
  Transmission Date: 20120825
  Serious: Yes (Hospitalization)
  Sender: FDA-Public Use
  Company Number: FI-NAPPMUNDI-GBR-2012-0009689

PATIENT
  Age: 86 Year
  Sex: Female

DRUGS (1)
  1. NORSPAN 5 MCG/HR DEPOTLAASTARI [Suspect]
     Indication: PRODUCT USED FOR UNKNOWN INDICATION
     Dosage: 5 MCG, Q1H
     Route: 062
     Dates: start: 20110715, end: 20110718

REACTIONS (5)
  - UNRESPONSIVE TO STIMULI [None]
  - SOCIAL AVOIDANT BEHAVIOUR [None]
  - APNOEA [None]
  - APHASIA [None]
  - DISORIENTATION [None]
